FAERS Safety Report 6316333-8 (Version None)
Quarter: 2009Q3

REPORT INFORMATION
  Report Type: 
  Country: None (occurrence: None)
  Receive Date: 20090820
  Receipt Date: 20090811
  Transmission Date: 20100115
  Serious: Yes (Death, Hospitalization)
  Sender: FDA-Public Use
  Company Number: A0800710A

PATIENT
  Age: 84 Year
  Sex: Female

DRUGS (1)
  1. AVANDIA [Suspect]
     Route: 048
     Dates: start: 20020101, end: 20071008

REACTIONS (9)
  - AKINESIA [None]
  - APHASIA [None]
  - BLINDNESS [None]
  - CARDIOVASCULAR DISORDER [None]
  - DEATH [None]
  - LEG AMPUTATION [None]
  - MYOCARDIAL INFARCTION [None]
  - SKIN ULCER [None]
  - ULCER [None]
